FAERS Safety Report 6912149-X (Version None)
Quarter: 2010Q3

REPORT INFORMATION
  Report Type: 
  Country: None (occurrence: None)
  Receive Date: 20100806
  Receipt Date: 20071226
  Transmission Date: 20110219
  Serious: No
  Sender: FDA-Public Use
  Company Number: US-PFIZER INC-2008000383

PATIENT
  Sex: Male

DRUGS (3)
  1. DETROL LA [Suspect]
  2. LIPITOR [Suspect]
  3. METOPROLOL [Suspect]

REACTIONS (1)
  - CONSTIPATION [None]
